FAERS Safety Report 10500983 (Version 1)
Quarter: 2014Q4

REPORT INFORMATION
  Report Type: Spontaneous
  Country: IT (occurrence: IT)
  Receive Date: 20141007
  Receipt Date: 20141007
  Transmission Date: 20150528
  Serious: Yes (Hospitalization)
  Sender: FDA-Public Use
  Company Number: IT-AUROBINDO-AUR-APL-2014-10417

PATIENT
  Age: 43 Year
  Sex: Male

DRUGS (4)
  1. MIRTAZAPINE. [Concomitant]
     Active Substance: MIRTAZAPINE
     Indication: PRODUCT USED FOR UNKNOWN INDICATION
     Dosage: 30 MG, UNK (1 TABLET PER DAY)
     Route: 065
  2. PAROXETINE FILM-COATED TABLET [Suspect]
     Active Substance: PAROXETINE\PAROXETINE HYDROCHLORIDE
     Dosage: 280 MG, TOTAL
     Route: 048
     Dates: start: 20140908, end: 20140908
  3. RIVOTRIL [Suspect]
     Active Substance: CLONAZEPAM
     Indication: PRODUCT USED FOR UNKNOWN INDICATION
     Dosage: 20 MG, UNK, TOTAL
     Route: 048
     Dates: start: 20140908, end: 20140908
  4. PAROXETINE FILM-COATED TABLET [Suspect]
     Active Substance: PAROXETINE\PAROXETINE HYDROCHLORIDE
     Indication: MAJOR DEPRESSION
     Dosage: 280 MG, TOTAL (2 TABLETS PER DAY)
     Route: 048
     Dates: start: 20140908, end: 20140908

REACTIONS (5)
  - Platelet count decreased [Recovered/Resolved]
  - Sopor [Recovered/Resolved]
  - Disturbance in attention [Recovered/Resolved]
  - Drug abuse [Recovered/Resolved]
  - Toxicity to various agents [Recovered/Resolved]

NARRATIVE: CASE EVENT DATE: 20140908
